FAERS Safety Report 6554585-X (Version None)
Quarter: 2010Q1

REPORT INFORMATION
  Report Type: 
  Country: None (occurrence: None)
  Receive Date: 20100127
  Receipt Date: 20100118
  Transmission Date: 20100710
  Serious: Yes (Hospitalization, Other)
  Sender: FDA-Public Use
  Company Number: IT-ELI_LILLY_AND_COMPANY-IT200912000681

PATIENT
  Sex: Female

DRUGS (14)
  1. HUMALOG [Suspect]
     Indication: DIABETES MELLITUS
     Dosage: 18 IU, DAILY (1/D)
     Dates: start: 19990101, end: 20091112
  2. HUMALOG [Suspect]
     Dosage: 18 IU, DAILY (1/D)
     Dates: start: 20091101
  3. METFORALMILLE [Concomitant]
     Indication: DIABETES MELLITUS
     Dosage: 1500 MG, DAILY (1/D)
     Route: 048
     Dates: start: 19990101, end: 20091112
  4. METFORALMILLE [Concomitant]
     Dosage: 1500 MG, DAILY (1/D)
     Route: 048
     Dates: start: 20091101
  5. ATENOLOL [Concomitant]
     Dosage: 1 D/F, UNK
  6. GABAPENTIN [Concomitant]
  7. ALLOPURINOL [Concomitant]
  8. OXYCODON [Concomitant]
  9. LASIX [Concomitant]
     Dosage: 2 D/F, UNK
  10. CARDURA [Concomitant]
     Dosage: 1 D/F, UNK
  11. MADOPAR /00349201/ [Concomitant]
     Dosage: 2.5 D/F, UNK
  12. ASPIRIN [Concomitant]
  13. MEPRAL [Concomitant]
  14. ZOLOFT [Concomitant]

REACTIONS (3)
  - DECUBITUS ULCER [None]
  - HYPOGLYCAEMIA [None]
  - PNEUMONIA [None]
